FAERS Safety Report 8138504-0 (Version None)
Quarter: 2012Q1

REPORT INFORMATION
  Report Type: 
  Country: None (occurrence: None)
  Receive Date: 20120215
  Receipt Date: 20120210
  Transmission Date: 20120608
  Serious: Yes (Other)
  Sender: FDA-Public Use
  Company Number: CN-ROCHE-1039186

PATIENT
  Age: 56 Year
  Sex: Female
  Weight: 70 kg

DRUGS (2)
  1. HERCEPTIN [Suspect]
     Indication: BREAST CANCER
     Route: 041
     Dates: start: 20090601, end: 20100101
  2. PACLITAXEL [Concomitant]
     Indication: BREAST CANCER
     Dates: start: 20090601

REACTIONS (2)
  - DRUG INEFFECTIVE [None]
  - BREAST CANCER METASTATIC [None]
